FAERS Safety Report 20684833 (Version 1)
Quarter: 2022Q2

REPORT INFORMATION
  Report Type: Spontaneous
  Country: FR (occurrence: FR)
  Receive Date: 20220407
  Receipt Date: 20220407
  Transmission Date: 20220721
  Serious: Yes (Other)
  Sender: FDA-Public Use
  Company Number: None

PATIENT
  Age: 40 Year
  Sex: Male

DRUGS (1)
  1. VIAGRA [Suspect]
     Active Substance: SILDENAFIL CITRATE
     Indication: Poisoning deliberate
     Dosage: UNK
     Route: 048
     Dates: start: 20210830, end: 20210830

REACTIONS (6)
  - Pulmonary arterial pressure increased [Recovering/Resolving]
  - Electrocardiogram ST segment elevation [Recovered/Resolved]
  - Visual impairment [Recovered/Resolved]
  - Tachycardia [Recovered/Resolved]
  - Chest pain [Recovered/Resolved]
  - Off label use [Recovered/Resolved]

NARRATIVE: CASE EVENT DATE: 20210830
